FAERS Safety Report 7888705-1 (Version None)
Quarter: 2011Q4

REPORT INFORMATION
  Report Type: 
  Country: None (occurrence: None)
  Receive Date: 20111101
  Receipt Date: 20111020
  Transmission Date: 20120403
  Serious: Yes (Hospitalization)
  Sender: FDA-Public Use
  Company Number: 2011SP049682

PATIENT
  Sex: Male

DRUGS (1)
  1. VICTRELIS [Suspect]
     Indication: HEPATITIS C
     Dates: start: 20110101, end: 20110101

REACTIONS (3)
  - NOCARDIOSIS [None]
  - PNEUMONIA [None]
  - EMPYEMA [None]
